FAERS Safety Report 24648758 (Version 1)
Quarter: 2024Q4

REPORT INFORMATION
  Report Type: Report from Study
  Country: US (occurrence: US)
  Receive Date: 20241121
  Receipt Date: 20241121
  Transmission Date: 20250114
  Serious: Yes (Hospitalization, Other)
  Sender: GILEAD
  Company Number: US-GILEAD-2024-0694719

PATIENT
  Sex: Female

DRUGS (26)
  1. AZTREONAM LYSINE [Suspect]
     Active Substance: AZTREONAM LYSINE
     Indication: Cystic fibrosis
     Dosage: ADD 1 ML OF STERILE RESPIRATORY SALINE TO OPENED VIAL, RECAP, SWIRL, THEN IMMEDIATELY ADD TO ALTERA
     Route: 065
     Dates: start: 202106
  2. TYMLOS [Concomitant]
     Active Substance: ABALOPARATIDE
  3. GEMTESA [Concomitant]
     Active Substance: VIBEGRON
  4. SINEMET [Concomitant]
     Active Substance: CARBIDOPA\LEVODOPA
  5. PULMOZYME [Concomitant]
     Active Substance: DORNASE ALFA
  6. JARDIANCE [Concomitant]
     Active Substance: EMPAGLIFLOZIN
  7. TORSEMIDE [Concomitant]
     Active Substance: TORSEMIDE
  8. LYRICA [Concomitant]
     Active Substance: PREGABALIN
  9. CIPROFLOXACIN HYDROCHLORIDE [Concomitant]
     Active Substance: CIPROFLOXACIN HYDROCHLORIDE
  10. TRIKAFTA [Concomitant]
     Active Substance: ELEXACAFTOR\IVACAFTOR\TEZACAFTOR
  11. AZITHROMYCIN [Concomitant]
     Active Substance: AZITHROMYCIN
  12. ALBUTEROL SULFATE [Concomitant]
     Active Substance: ALBUTEROL SULFATE
  13. PEPCID [Concomitant]
     Active Substance: FAMOTIDINE
  14. CLONIDINE HYDROCHLORIDE [Concomitant]
     Active Substance: CLONIDINE HYDROCHLORIDE
  15. ALBUTEROL\IPRATROPIUM [Concomitant]
     Active Substance: ALBUTEROL\IPRATROPIUM
  16. PROBIOTICS NOS [Concomitant]
     Active Substance: PROBIOTICS NOS
  17. VENLAFAXINE HYDROCHLORIDE [Concomitant]
     Active Substance: VENLAFAXINE HYDROCHLORIDE
  18. NADOLOL [Concomitant]
     Active Substance: NADOLOL
  19. VESICARE [Concomitant]
     Active Substance: SOLIFENACIN SUCCINATE
  20. OMEPRAZOLE [Concomitant]
     Active Substance: OMEPRAZOLE
  21. CLONAZEPAM [Concomitant]
     Active Substance: CLONAZEPAM
  22. NAPROXEN [Concomitant]
     Active Substance: NAPROXEN
  23. BETHANECHOL CHLORIDE [Concomitant]
     Active Substance: BETHANECHOL CHLORIDE
  24. ALPRAZOLAM [Concomitant]
     Active Substance: ALPRAZOLAM
  25. PROCHLORPERAZINE EDISYLATE [Concomitant]
     Active Substance: PROCHLORPERAZINE EDISYLATE
  26. SODIUM CHLORIDE [Concomitant]
     Active Substance: SODIUM CHLORIDE

REACTIONS (2)
  - Hip fracture [Unknown]
  - Fall [Unknown]
